FAERS Safety Report 12968181 (Version 1)
Quarter: 2016Q4

REPORT INFORMATION
  Report Type: Spontaneous
  Country: US (occurrence: US)
  Receive Date: 20161123
  Receipt Date: 20161123
  Transmission Date: 20170207
  Serious: Yes (Disabling)
  Sender: FDA-Public Use
  Company Number: None

PATIENT
  Age: 72 Year
  Sex: Male
  Weight: 121.5 kg

DRUGS (8)
  1. GLIPIZIDE. [Suspect]
     Active Substance: GLIPIZIDE
     Indication: DIABETES MELLITUS
     Dosage: ?          QUANTITY:1 TABLET(S);?
     Route: 048
  2. METFORMIN [Suspect]
     Active Substance: METFORMIN HYDROCHLORIDE
     Indication: DIABETES MELLITUS
     Dosage: ?          QUANTITY:1 TABLET(S);?
     Route: 048
  3. LISINOPRIL. [Concomitant]
     Active Substance: LISINOPRIL
  4. HYDROCHLOROTHIAZIDE. [Concomitant]
     Active Substance: HYDROCHLOROTHIAZIDE
  5. ESCITALOPRAM [Concomitant]
     Active Substance: ESCITALOPRAM OXALATE
  6. SIMVASTATIN. [Concomitant]
     Active Substance: SIMVASTATIN
  7. BUPROPION. [Concomitant]
     Active Substance: BUPROPION
  8. 81MG ASPIRIN [Concomitant]

REACTIONS (16)
  - Fatigue [None]
  - Hunger [None]
  - Dyspnoea [None]
  - Dysarthria [None]
  - Asthenia [None]
  - Pollakiuria [None]
  - Back pain [None]
  - Discomfort [None]
  - Nervousness [None]
  - Anxiety [None]
  - Dizziness [None]
  - Confusional state [None]
  - Depression [None]
  - Multiple injuries [None]
  - Myalgia [None]
  - Fall [None]

NARRATIVE: CASE EVENT DATE: 20161122
